FAERS Safety Report 24965151 (Version 1)
Quarter: 2025Q1

REPORT INFORMATION
  Report Type: Spontaneous
  Country: US (occurrence: US)
  Receive Date: 20250213
  Receipt Date: 20250213
  Transmission Date: 20250408
  Serious: Yes (Other)
  Sender: Unknown Manufacturer
  Company Number: US-KOANAAP-SML-US-2025-00114

PATIENT
  Age: 68 Year
  Sex: Female

DRUGS (3)
  1. ERLOTINIB [Suspect]
     Active Substance: ERLOTINIB
     Indication: Lung adenocarcinoma
     Route: 048
  2. ERLOTINIB [Suspect]
     Active Substance: ERLOTINIB
     Indication: Metastases to liver
  3. ERLOTINIB [Suspect]
     Active Substance: ERLOTINIB
     Indication: Adrenal gland cancer metastatic

REACTIONS (4)
  - Xerosis [Recovering/Resolving]
  - Skin lesion [Recovering/Resolving]
  - Rash pustular [Recovering/Resolving]
  - Therapy partial responder [Unknown]
